FAERS Safety Report 7338829-2 (Version None)
Quarter: 2011Q1

REPORT INFORMATION
  Report Type: 
  Country: None (occurrence: None)
  Receive Date: 20110308
  Receipt Date: 20110224
  Transmission Date: 20110831
  Serious: Yes (Other)
  Sender: FDA-Public Use
  Company Number: PHHO2011IT03554

PATIENT
  Sex: Female
  Weight: 46 kg

DRUGS (2)
  1. FTY 720 [Suspect]
     Dosage: UNK
     Route: 048
     Dates: start: 20110222
  2. FTY 720 [Suspect]
     Indication: MULTIPLE SCLEROSIS
     Dosage: 0.5 MG, DAILY
     Route: 048
     Dates: start: 20110208, end: 20110208

REACTIONS (2)
  - ATRIOVENTRICULAR BLOCK SECOND DEGREE [None]
  - ATRIOVENTRICULAR BLOCK [None]
